FAERS Safety Report 4562528-3 (Version None)
Quarter: 2005Q1

REPORT INFORMATION
  Report Type: 
  Country: None (occurrence: None)
  Receive Date: 20050124
  Receipt Date: 20050112
  Transmission Date: 20050727
  Serious: Yes (Other)
  Sender: FDA-Public Use
  Company Number: 200510192BCC

PATIENT
  Age: 30 Year
  Sex: Female
  Weight: 72.5755 kg

DRUGS (1)
  1. ALEVE [Suspect]
     Indication: HEADACHE
     Dosage: 220 MG, BID, ORAL
     Route: 048
     Dates: start: 20030101

REACTIONS (4)
  - FACIAL PALSY [None]
  - HEMIPLEGIA [None]
  - HYPOAESTHESIA [None]
  - STRESS [None]
